FAERS Safety Report 5599361-X (Version None)
Quarter: 2008Q1

REPORT INFORMATION
  Report Type: 
  Country: None (occurrence: None)
  Receive Date: 20080117
  Receipt Date: 20080107
  Transmission Date: 20080703
  Serious: Yes (Hospitalization)
  Sender: FDA-Public Use
  Company Number: 2008-00065

PATIENT
  Age: 24 Year
  Sex: Male

DRUGS (4)
  1. ZONISAMIDE [Suspect]
     Indication: PARTIAL SEIZURES
     Dosage: 300 MG, DAILY, ORAL; 400 - 600 MG, DAILY, ORAL; 160 - 300 MG, DAILY, ORAL
     Route: 048
  2. CARBAMAZEPINE [Suspect]
     Indication: PARTIAL SEIZURES
     Dosage: 400 - 600 MG, DAILY, ORAL
     Route: 048
  3. RISPERIDONE ^JANSSEN^ (RISPERIDONE) [Concomitant]
  4. CLONAZEPAM [Concomitant]

REACTIONS (4)
  - BLOOD PRESSURE FLUCTUATION [None]
  - DRUG INTERACTION [None]
  - HEART RATE ABNORMAL [None]
  - NEUROLEPTIC MALIGNANT SYNDROME [None]
